FAERS Safety Report 24402372 (Version 1)
Quarter: 2024Q4

REPORT INFORMATION
  Report Type: Spontaneous
  Country: US (occurrence: US)
  Receive Date: 20241007
  Receipt Date: 20241007
  Transmission Date: 20250114
  Serious: Yes (Other)
  Sender: ALKEM
  Company Number: US-ALKEM LABORATORIES LIMITED-US-ALKEM-2024-22669

PATIENT
  Age: 60 Year
  Sex: Male

DRUGS (1)
  1. PREGABALIN [Suspect]
     Active Substance: PREGABALIN
     Indication: Product used for unknown indication
     Dosage: UNK
     Route: 065

REACTIONS (7)
  - Ventricular arrhythmia [Unknown]
  - Toxicity to various agents [Unknown]
  - Hyperreflexia [Unknown]
  - Clonus [Unknown]
  - Tachycardia [Unknown]
  - Agitation [Unknown]
  - Tremor [Unknown]
